FAERS Safety Report 4582109-5 (Version None)
Quarter: 2005Q1

REPORT INFORMATION
  Report Type: 
  Country: None (occurrence: None)
  Receive Date: 20050119
  Receipt Date: 20031218
  Transmission Date: 20050727
  Serious: Yes (Hospitalization)
  Sender: FDA-Public Use
  Company Number: A03200303005

PATIENT
  Age: 56 Year
  Sex: Female
  Weight: 58.9676 kg

DRUGS (5)
  1. PLAVIX [Suspect]
     Indication: MYOCARDIAL INFARCTION
     Dosage: 75 MG QD - ORAL
     Route: 048
     Dates: start: 20031031, end: 20031101
  2. PLAVIX [Suspect]
     Indication: STENT PLACEMENT
     Dosage: 37.5 MG BID - ORAL
     Route: 048
     Dates: start: 20031101
  3. FLUTICASONE PROPIONATE [Concomitant]
     Indication: MYOCARDIAL INFARCTION
  4. FLUTICASONE PROPIONATE [Concomitant]
     Indication: STENT PLACEMENT
  5. METOPROLOL SUCCINATE [Concomitant]

REACTIONS (4)
  - ASTHENIA [None]
  - DIZZINESS [None]
  - MYOCARDIAL INFARCTION [None]
  - SOMNOLENCE [None]
